FAERS Safety Report 6868532-4 (Version None)
Quarter: 2010Q3

REPORT INFORMATION
  Report Type: 
  Country: None (occurrence: None)
  Receive Date: 20100722
  Receipt Date: 20080530
  Transmission Date: 20110219
  Serious: No
  Sender: FDA-Public Use
  Company Number: US-PFIZER INC-2008047165

PATIENT
  Sex: Male

DRUGS (1)
  1. CHANTIX [Suspect]

REACTIONS (4)
  - AFFECTIVE DISORDER [None]
  - DISTURBANCE IN ATTENTION [None]
  - PAIN [None]
  - PAIN IN EXTREMITY [None]
